FAERS Safety Report 6344508-0 (Version None)
Quarter: 2009Q3

REPORT INFORMATION
  Report Type: 
  Country: None (occurrence: None)
  Receive Date: 20090903
  Receipt Date: 20090821
  Transmission Date: 20100115
  Serious: Yes (Hospitalization, Other)
  Sender: FDA-Public Use
  Company Number: 231725K08USA

PATIENT
  Age: 36 Year
  Sex: Female
  Weight: 73 kg

DRUGS (7)
  1. REBIF [Suspect]
     Indication: MULTIPLE SCLEROSIS
     Dosage: 3 IN 1 WEEKS
     Dates: start: 20070701, end: 20080501
  2. ALCOHOL (ETHANOL) [Suspect]
  3. NYQUIL (MEDINITE) [Suspect]
  4. ZOLOFT [Suspect]
     Indication: DEPRESSION
     Dates: start: 20080301, end: 20080401
  5. PAIN PILLS (ALL OTHER THERAPEUTIC PRODUCTS) [Suspect]
  6. UNSPECIFIED PILLS (ALL OTHER THERAPEUTIC PRODUCTS) [Suspect]
  7. HYDROCODONE (HYDROCODONE) [Suspect]
     Indication: ACCIDENT AT WORK

REACTIONS (11)
  - ABDOMINAL PAIN [None]
  - ACCIDENT AT WORK [None]
  - COLON INJURY [None]
  - CONDITION AGGRAVATED [None]
  - CRYING [None]
  - DEPRESSION [None]
  - INTENTIONAL SELF-INJURY [None]
  - MULTIPLE DRUG OVERDOSE INTENTIONAL [None]
  - MULTIPLE SCLEROSIS [None]
  - ROAD TRAFFIC ACCIDENT [None]
  - SUICIDE ATTEMPT [None]
